FAERS Safety Report 11754778 (Version 2)
Quarter: 2015Q4

REPORT INFORMATION
  Report Type: Spontaneous
  Country: US (occurrence: US)
  Receive Date: 20151119
  Receipt Date: 20151120
  Transmission Date: 20160304
  Serious: No
  Sender: FDA-Public Use
  Company Number: US-ETHYPHARM USA CORP-EY-BP-US-2015-039

PATIENT
  Age: 24 Year
  Sex: Female

DRUGS (1)
  1. BUPRENORPHINE HYDROCHLORIDE 8MG [Suspect]
     Active Substance: BUPRENORPHINE HYDROCHLORIDE
     Indication: DRUG DEPENDENCE
     Route: 060

REACTIONS (8)
  - Product substitution issue [None]
  - Maternal exposure during pregnancy [None]
  - Abdominal pain [None]
  - Exposure during pregnancy [None]
  - Abdominal pain upper [None]
  - Drug effect incomplete [None]
  - Nausea [None]
  - Product quality issue [None]
